FAERS Safety Report 9392342 (Version 1)
Quarter: 2013Q3

REPORT INFORMATION
  Report Type: Spontaneous
  Country: US (occurrence: None)
  Receive Date: 20130708
  Receipt Date: 20130708
  Transmission Date: 20140515
  Serious: Yes (Hospitalization)
  Sender: FDA-Public Use
  Company Number: None

PATIENT
  Age: 55 Year
  Sex: Male
  Weight: 85 kg

DRUGS (1)
  1. LAMOTRIGINE [Suspect]
     Indication: CONVULSION
     Route: 048
     Dates: start: 20131222

REACTIONS (7)
  - Toxicity to various agents [None]
  - Dizziness [None]
  - Fall [None]
  - Ataxia [None]
  - Romberg test positive [None]
  - Product substitution issue [None]
  - Gait disturbance [None]
